FAERS Safety Report 7599306-7 (Version None)
Quarter: 2011Q3

REPORT INFORMATION
  Report Type: 
  Country: None (occurrence: None)
  Receive Date: 20110711
  Receipt Date: 20101209
  Transmission Date: 20111222
  Serious: Yes (Death, Hospitalization, Other)
  Sender: FDA-Public Use
  Company Number: US-BAYER-200940385NA

PATIENT
  Age: 57 Year
  Sex: Female
  Weight: 58.957 kg

DRUGS (23)
  1. TRASYLOL [Suspect]
     Dosage: 25ML/HR INFUSION
     Route: 042
     Dates: start: 20050505, end: 20050505
  2. INSULIN HUMAN [Concomitant]
     Dosage: 40 U
     Route: 042
     Dates: start: 20050505, end: 20050505
  3. ROCEPHIN [Concomitant]
     Dosage: UNK
     Route: 042
     Dates: start: 20050504, end: 20050505
  4. ROCALTROL [Concomitant]
     Dosage: 0.5 MG, QD
  5. MIDAZOLAM HCL [Concomitant]
     Dosage: UNK
     Route: 042
     Dates: start: 20050505, end: 20050505
  6. CLINDAMYCIN [Concomitant]
     Indication: BACTERIAL DISEASE CARRIER
     Dosage: UNK
     Dates: end: 20050401
  7. AZTREONAM [Concomitant]
     Indication: BACTERIAL DISEASE CARRIER
     Dosage: UNK
     Dates: end: 20050401
  8. PHENYLEPHRINE HCL [Concomitant]
     Dosage: UNK
     Route: 042
     Dates: start: 20050505, end: 20050505
  9. RENAGEL [Concomitant]
     Dosage: 800 MG 3 TABLETS THREE TIMES DAILY
  10. CATAPRES [Concomitant]
     Indication: HYPERTENSION
     Route: 048
  11. TRASYLOL [Suspect]
     Indication: CORONARY ARTERY BYPASS
     Dosage: UNK, TEST DOSE
     Route: 042
     Dates: start: 20050505, end: 20050505
  12. PROTONIX [Concomitant]
     Dosage: 40 MG, QD
  13. FLUCONAZOLE [Concomitant]
     Dosage: 50 MG, QD
  14. FLAGYL [Concomitant]
     Dosage: 500 MG, TID
     Dates: end: 20050201
  15. EPOGEN [Concomitant]
     Dosage: 5000 UNITS TWICE A WEEK
  16. VANCOMYCIN [Concomitant]
     Indication: SEPSIS
  17. BACTRIM [Concomitant]
     Indication: BACTERIAL DISEASE CARRIER
     Dosage: UNK
     Dates: end: 20050401
  18. NIMBEX [Concomitant]
     Dosage: UNK
     Route: 042
     Dates: start: 20050505, end: 20050505
  19. PROPOFOL [Concomitant]
     Dosage: UNK
     Route: 042
     Dates: start: 20050505, end: 20050505
  20. LIPITOR [Concomitant]
     Dosage: 20 MG, UNK
     Route: 048
     Dates: start: 19990101
  21. VANCOMYCIN [Concomitant]
     Indication: BACTERIAL DISEASE CARRIER
     Dosage: UNK
     Route: 042
     Dates: end: 20050401
  22. FENTANYL [Concomitant]
     Dosage: UNK
     Route: 042
     Dates: start: 20050505, end: 20050505
  23. COUMADIN [Concomitant]
     Route: 048

REACTIONS (13)
  - RENAL FAILURE [None]
  - ANXIETY [None]
  - ANHEDONIA [None]
  - DEATH [None]
  - RENAL INJURY [None]
  - UNEVALUABLE EVENT [None]
  - FEAR [None]
  - INJURY [None]
  - RENAL IMPAIRMENT [None]
  - EMOTIONAL DISTRESS [None]
  - MULTI-ORGAN FAILURE [None]
  - STRESS [None]
  - PAIN [None]
